FAERS Safety Report 14940395 (Version 3)
Quarter: 2018Q3

REPORT INFORMATION
  Report Type: Spontaneous
  Country: NO (occurrence: NO)
  Receive Date: 20180525
  Receipt Date: 20180705
  Transmission Date: 20181010
  Serious: Yes (Hospitalization, Other)
  Sender: FDA-Public Use
  Company Number: NO-PFIZER INC-2018206519

PATIENT
  Age: 40 Year
  Sex: Male

DRUGS (8)
  1. ESOMEPRAZOLE [Concomitant]
     Active Substance: ESOMEPRAZOLE
     Dosage: 20 MG, 1X/DAY
     Route: 048
  2. CYCLOPHOSPHAMIDE. [Suspect]
     Active Substance: CYCLOPHOSPHAMIDE
     Indication: NON-HODGKIN^S LYMPHOMA
     Dosage: 1700 MG, SINGLE (ONLY ONE DOSE ADMINISTERED BEFORE ADR)
     Route: 042
     Dates: start: 20180320, end: 20180320
  3. VINCRISTINE [Suspect]
     Active Substance: VINCRISTINE
     Dosage: 2 MG, CYCLIC
     Route: 042
     Dates: start: 20180320
  4. VINCRISTINE [Suspect]
     Active Substance: VINCRISTINE
     Indication: NON-HODGKIN^S LYMPHOMA
     Dosage: 1 MG, CYCLIC (SINGLE INFUSION)
     Route: 042
     Dates: start: 20180316, end: 20180316
  5. DUORESP SPIROMAX [Concomitant]
     Active Substance: BUDESONIDE\FORMOTEROL
     Dosage: UNK
  6. TRAMADOL. [Suspect]
     Active Substance: TRAMADOL
     Indication: PAIN
     Dosage: 50 MG UP TO 3 TIMES DAILY.ONE TABLET TAKEN ON 29MAR2018.
     Route: 048
     Dates: start: 20180329
  7. DUORESP SPIROMAX [Concomitant]
     Active Substance: BUDESONIDE\FORMOTEROL
     Indication: ASTHMA
     Dosage: 2 DF EVERY 12 HOURS (BUDESONIDE/FORMOTEROL)
     Route: 055
  8. ALLOPURINOL. [Concomitant]
     Active Substance: ALLOPURINOL
     Dosage: 200 MG, 3X/DAY (ONCE EVERY 8 HOURS)
     Route: 048
     Dates: end: 20180330

REACTIONS (6)
  - Nuclear magnetic resonance imaging abnormal [Unknown]
  - Seizure [Recovered/Resolved]
  - Coma scale abnormal [Unknown]
  - Syncope [Recovered/Resolved]
  - Fall [Recovered/Resolved]
  - Tongue biting [Recovered/Resolved]

NARRATIVE: CASE EVENT DATE: 20180329
